FAERS Safety Report 9626750 (Version 3)
Quarter: 2013Q4

REPORT INFORMATION
  Report Type: Report from Study
  Country: CA (occurrence: CA)
  Receive Date: 20131016
  Receipt Date: 20131115
  Transmission Date: 20140711
  Serious: Yes (Other)
  Sender: FDA-Public Use
  Company Number: CA-JNJFOC-20131006717

PATIENT
  Age: 49 Year
  Sex: Female
  Weight: 64.9 kg

DRUGS (4)
  1. REMICADE [Suspect]
     Indication: CROHN^S DISEASE
     Route: 042
     Dates: start: 20131030
  2. REMICADE [Suspect]
     Indication: CROHN^S DISEASE
     Route: 042
     Dates: start: 201206
  3. ASACOL [Concomitant]
     Route: 065
  4. PARIET [Concomitant]
     Route: 065

REACTIONS (2)
  - Postoperative wound infection [Recovered/Resolved]
  - Tendon operation [Unknown]
